FAERS Safety Report 10457446 (Version 1)
Quarter: 2014Q3

REPORT INFORMATION
  Report Type: Spontaneous
  Country: DE (occurrence: DE)
  Receive Date: 20140916
  Receipt Date: 20140916
  Transmission Date: 20150326
  Serious: Yes (Congenital Anomaly, Other)
  Sender: FDA-Public Use
  Company Number: DE-MYLAN-2014M1003583

PATIENT

DRUGS (6)
  1. MIRTAZAPIN [Suspect]
     Active Substance: MIRTAZAPINE
     Indication: DEPRESSION
     Dosage: 45 [MG/D ] (0. - 41.3 GESTATIONAL WEEK)
     Route: 064
     Dates: start: 20120603, end: 20130320
  2. TREVILOR RETARD [Suspect]
     Active Substance: VENLAFAXINE HYDROCHLORIDE
     Indication: DEPRESSION
     Dosage: 75 [MG/D ] (2.5 - 10.3 GESTATIONAL WEEK)
     Route: 064
     Dates: start: 20120622, end: 20120815
  3. TAVOR [Suspect]
     Active Substance: LORAZEPAM
     Indication: DEPRESSION
     Dosage: 0.5 MG, QD (0. - 10.3. GESTATIONAL WEEK
     Route: 064
     Dates: start: 20120603, end: 20120815
  4. FOLS?URE [Concomitant]
     Indication: PROPHYLAXIS OF NEURAL TUBE DEFECT
     Dosage: UNK
     Route: 064
     Dates: start: 20120615, end: 20121015
  5. DOLANTINA [Suspect]
     Active Substance: MEPERIDINE HYDROCHLORIDE
     Indication: LABOUR PAIN
     Dosage: UNKNOWN DOSAGE(41.3. - 41.3. GESTATIONAL WEEK)
     Route: 064
     Dates: start: 20130320, end: 20130320
  6. BUSCOPAN [Suspect]
     Active Substance: BUTYLSCOPOLAMINE BROMIDE
     Indication: LABOUR PAIN
     Dosage: UNKNOWN DOSAGE (41.3. - 41.3. GESTATIONAL WEEK)
     Route: 064
     Dates: start: 20130320, end: 20130320

REACTIONS (9)
  - Convulsion neonatal [Recovered/Resolved]
  - Patent ductus arteriosus [Unknown]
  - Hypotonia neonatal [Recovered/Resolved]
  - Neonatal asphyxia [Recovered/Resolved]
  - Neonatal asphyxia [None]
  - Encephalopathy neonatal [Unknown]
  - Cardiac arrest neonatal [Recovered/Resolved]
  - Foetal exposure during pregnancy [Unknown]
  - Atrial septal defect [Unknown]

NARRATIVE: CASE EVENT DATE: 20130320
